FAERS Safety Report 15387933 (Version 1)
Quarter: 2018Q3

REPORT INFORMATION
  Report Type: Spontaneous
  Country: US (occurrence: US)
  Receive Date: 20180915
  Receipt Date: 20180915
  Transmission Date: 20181010
  Serious: No
  Sender: FDA-Public Use
  Company Number: US-AMGEN-USASP2018126254

PATIENT
  Age: 58 Year
  Sex: Male

DRUGS (3)
  1. ENBREL [Suspect]
     Active Substance: ETANERCEPT
     Indication: PRODUCT USED FOR UNKNOWN INDICATION
     Dosage: UNK
     Route: 065
  2. XELJANZ XR [Suspect]
     Active Substance: TOFACITINIB CITRATE
     Indication: PRODUCT USED FOR UNKNOWN INDICATION
     Dosage: UNK
     Route: 065
     Dates: start: 201804
  3. VITAMIN D3 [Concomitant]
     Active Substance: CHOLECALCIFEROL
     Dosage: 5000 UNITS, QD
     Route: 048

REACTIONS (7)
  - Arthritis [Unknown]
  - Upper respiratory tract infection [Unknown]
  - Fatigue [Unknown]
  - Muscular weakness [Unknown]
  - Psoriasis [Not Recovered/Not Resolved]
  - Exostosis [Unknown]
  - Somnolence [Unknown]

NARRATIVE: CASE EVENT DATE: 201711
